FAERS Safety Report 23132480 (Version 1)
Quarter: 2023Q4

REPORT INFORMATION
  Report Type: Spontaneous
  Country: US (occurrence: US)
  Receive Date: 20231101
  Receipt Date: 20231101
  Transmission Date: 20240110
  Serious: Yes (Hospitalization)
  Sender: FDA-Public Use
  Company Number: US-ABBVIE-5475877

PATIENT
  Sex: Male

DRUGS (1)
  1. IMBRUVICA [Suspect]
     Active Substance: IBRUTINIB
     Indication: Product used for unknown indication
     Dosage: STRENGTH: 140 MG?TAKE 3 CAPS BY MOUTH ONCE DAILY
     Route: 048
     Dates: start: 20220523

REACTIONS (1)
  - Left atrial appendage closure implant [Unknown]
